FAERS Safety Report 9966381 (Version 1)
Quarter: 2014Q1

REPORT INFORMATION
  Report Type: Report from Study
  Country: US (occurrence: US)
  Receive Date: 20140305
  Receipt Date: 20140305
  Transmission Date: 20141002
  Serious: No
  Sender: FDA-Public Use
  Company Number: US-ABBVIE-13P-163-1120408-00

PATIENT
  Age: 64 Year
  Sex: Female

DRUGS (1)
  1. HUMIRA [Suspect]
     Dates: start: 2011, end: 201306

REACTIONS (6)
  - Mastitis [Not Recovered/Not Resolved]
  - Breast discharge [Not Recovered/Not Resolved]
  - Erythema [Not Recovered/Not Resolved]
  - Breast pain [Not Recovered/Not Resolved]
  - Skin hypertrophy [Not Recovered/Not Resolved]
  - Breast swelling [Not Recovered/Not Resolved]
